FAERS Safety Report 9348007 (Version 2)
Quarter: 2013Q3

REPORT INFORMATION
  Report Type: Spontaneous
  Country: US (occurrence: US)
  Receive Date: 20130614
  Receipt Date: 20130724
  Transmission Date: 20140515
  Serious: Yes (Other)
  Sender: FDA-Public Use
  Company Number: US-JNJFOC-20130504147

PATIENT
  Sex: Female

DRUGS (4)
  1. TOPAMAX [Suspect]
     Indication: MIGRAINE
     Route: 048
     Dates: start: 2007, end: 200808
  2. OMNICEF [Suspect]
     Indication: PRODUCT USED FOR UNKNOWN INDICATION
     Route: 065
  3. ERYTHROMYCIN [Suspect]
     Indication: SINUSITIS
     Route: 065
  4. PRENATAL VITAMINS [Concomitant]
     Route: 065

REACTIONS (3)
  - Emotional disorder [Unknown]
  - Anxiety [Unknown]
  - Exposure during pregnancy [Recovered/Resolved]
